FAERS Safety Report 10407763 (Version 4)
Quarter: 2014Q4

REPORT INFORMATION
  Report Type: Spontaneous
  Country: JP (occurrence: JP)
  Receive Date: 20140825
  Receipt Date: 20141015
  Transmission Date: 20150528
  Serious: No
  Sender: FDA-Public Use
  Company Number: JP-PFIZER INC-2014235627

PATIENT
  Age: 78 Year
  Sex: Female

DRUGS (5)
  1. SOLITA T [Concomitant]
     Indication: FLUID REPLACEMENT
     Dosage: 500 ML, 1X/DAY
     Route: 041
     Dates: start: 20140817, end: 20140818
  2. FOSPHENYTOIN SODIUM. [Suspect]
     Active Substance: FOSPHENYTOIN SODIUM
     Dosage: 300 MG, 1X/DAY
     Route: 042
     Dates: start: 20140816, end: 20140818
  3. FOSPHENYTOIN SODIUM. [Suspect]
     Active Substance: FOSPHENYTOIN SODIUM
     Dosage: UNK
  4. TRANSAMIN [Concomitant]
     Active Substance: TRANEXAMIC ACID
     Indication: HAEMOSTASIS
     Dosage: 10 MG, 1X/DAY
     Route: 041
     Dates: start: 20140817, end: 20140818
  5. ADONA [Concomitant]
     Active Substance: CARBAZOCHROME SODIUM SULFONATE
     Indication: HAEMOSTASIS
     Dosage: 50 MG, 1X/DAY
     Route: 041
     Dates: start: 20140817, end: 20140818

REACTIONS (2)
  - Infusion site extravasation [Recovered/Resolved]
  - Infusion site swelling [Recovered/Resolved]

NARRATIVE: CASE EVENT DATE: 20140818
